FAERS Safety Report 4648897-4 (Version None)
Quarter: 2005Q2

REPORT INFORMATION
  Report Type: 
  Country: None (occurrence: None)
  Receive Date: 20050427
  Receipt Date: 20050311
  Transmission Date: 20051028
  Serious: No
  Sender: FDA-Public Use
  Company Number: 2005UW03898

PATIENT
  Age: 77 Year
  Sex: Female
  Weight: 80.739 kg

DRUGS (5)
  1. CRESTOR [Suspect]
     Indication: BLOOD CHOLESTEROL INCREASED
     Dosage: 10 MG PO
     Route: 048
     Dates: start: 20040201
  2. NORVASC [Concomitant]
  3. DIAZIDE [Concomitant]
  4. COREG [Concomitant]
  5. ASPIRIN [Concomitant]

REACTIONS (3)
  - ARTERIAL DISORDER [None]
  - BLINDNESS UNILATERAL [None]
  - OPTIC ISCHAEMIC NEUROPATHY [None]
